FAERS Safety Report 4401129-4 (Version None)
Quarter: 2004Q3

REPORT INFORMATION
  Report Type: 
  Country: None (occurrence: None)
  Receive Date: 20040907
  Receipt Date: 20031111
  Transmission Date: 20050211
  Serious: No
  Sender: FDA-Public Use
  Company Number: US-BRISTOL-MYERS SQUIBB COMPANY-12432472

PATIENT
  Age: 53 Year
  Sex: Female
  Weight: 61 kg

DRUGS (11)
  1. COUMADIN [Suspect]
     Indication: AORTIC VALVE REPLACEMENT
     Dosage: 4 MG ON MONDAYS AND FRIDAYS AND 2 MG ON SUNDAYS, TUESDAYS, WEDNESDAYS, THURSDAYS, AND SATURDAYS
     Route: 048
  2. MULTIVITAMIN [Concomitant]
  3. PREMARIN [Concomitant]
  4. CLARITIN [Concomitant]
  5. LASIX [Concomitant]
  6. K-DUR 10 [Concomitant]
  7. TOPROL-XL [Concomitant]
  8. CLONAZEPAM [Concomitant]
  9. VICODIN [Concomitant]
  10. PAXIL [Concomitant]
  11. DIFLUCAN [Concomitant]

REACTIONS (1)
  - INTERNATIONAL NORMALISED RATIO ABNORMAL [None]
